FAERS Safety Report 25255841 (Version 1)
Quarter: 2025Q2

REPORT INFORMATION
  Report Type: Spontaneous
  Country: US (occurrence: US)
  Receive Date: 20250430
  Receipt Date: 20250430
  Transmission Date: 20250717
  Serious: No
  Sender: PFIZER
  Company Number: US-PFIZER INC-PV202500050990

PATIENT
  Age: 80 Year
  Sex: Female

DRUGS (2)
  1. TUKYSA [Suspect]
     Active Substance: TUCATINIB
     Dosage: 300 MG, 2X/DAY
  2. LUNESTA [Suspect]
     Active Substance: ESZOPICLONE
     Indication: Insomnia

REACTIONS (1)
  - Nausea [Unknown]
